FAERS Safety Report 5384934-X (Version None)
Quarter: 2007Q3

REPORT INFORMATION
  Report Type: 
  Country: None (occurrence: None)
  Receive Date: 20070709
  Receipt Date: 20070629
  Transmission Date: 20080115
  Serious: Yes (Hospitalization, Other)
  Sender: FDA-Public Use
  Company Number: 2007-01748

PATIENT
  Age: 42 Year
  Sex: Male
  Weight: 99.8 kg

DRUGS (7)
  1. VELCADE [Suspect]
     Indication: MULTIPLE MYELOMA
     Dosage: 1.30 MG/M2, INTRAVENOUS
     Route: 042
     Dates: start: 20070518, end: 20070521
  2. VELCADE [Suspect]
     Indication: MULTIPLE MYELOMA
     Dosage: 1.30 MG/M2, INTRAVENOUS
     Route: 042
     Dates: start: 20070525
  3. PREVACID [Concomitant]
  4. LISINOPRIL [Concomitant]
  5. COREG [Concomitant]
  6. RENAGEL [Concomitant]
  7. AMBIEN [Concomitant]

REACTIONS (3)
  - COMA [None]
  - ENCEPHALOPATHY [None]
  - LABORATORY TEST INTERFERENCE [None]
